FAERS Safety Report 7105965-5 (Version None)
Quarter: 2010Q4

REPORT INFORMATION
  Report Type: 
  Country: None (occurrence: None)
  Receive Date: 20101110
  Receipt Date: 20101025
  Transmission Date: 20110411
  Serious: Yes (Other)
  Sender: FDA-Public Use
  Company Number: CV20100604

PATIENT
  Age: 25 Year
  Sex: Male

DRUGS (2)
  1. PROPOFOL [Suspect]
     Indication: INDUCTION OF ANAESTHESIA
     Dosage: 100 MG
  2. FENTANYL [Concomitant]

REACTIONS (2)
  - JOINT DISLOCATION [None]
  - PRIAPISM [None]
